FAERS Safety Report 24987049 (Version 2)
Quarter: 2025Q1

REPORT INFORMATION
  Report Type: Spontaneous
  Country: CN (occurrence: CN)
  Receive Date: 20250219
  Receipt Date: 20250221
  Transmission Date: 20250408
  Serious: Yes (Other)
  Sender: PFIZER
  Company Number: CN-MLMSERVICE-20250205-PI395661-00123-1

PATIENT
  Age: 45 Year
  Sex: Male

DRUGS (2)
  1. DOCETAXEL [Suspect]
     Active Substance: DOCETAXEL
     Indication: Gene sequencing
     Dosage: 75 MG/M2, INTRAVENOUSLY ON DAY 1 (3 CYCLES)
     Route: 042
     Dates: start: 201806, end: 201809
  2. DOCETAXEL [Suspect]
     Active Substance: DOCETAXEL
     Dates: start: 201810, end: 201903

REACTIONS (3)
  - Second primary malignancy [Recovered/Resolved]
  - Acute promyelocytic leukaemia [Recovered/Resolved]
  - PML/RAR alpha expression [Recovered/Resolved]

NARRATIVE: CASE EVENT DATE: 20190401
